FAERS Safety Report 12294465 (Version 1)
Quarter: 2016Q2

REPORT INFORMATION
  Report Type: Spontaneous
  Country: US (occurrence: None)
  Receive Date: 20160421
  Receipt Date: 20160421
  Transmission Date: 20160815
  Serious: No
  Sender: FDA-Public Use
  Company Number: None

PATIENT
  Age: 55 Year
  Sex: Male

DRUGS (1)
  1. VALSARTAN 160MG TABLET [Suspect]
     Active Substance: VALSARTAN
     Indication: HYPERTENSION
     Route: 048
     Dates: start: 20160409, end: 20160420

REACTIONS (4)
  - Neck pain [None]
  - Headache [None]
  - Myalgia [None]
  - Blood pressure fluctuation [None]

NARRATIVE: CASE EVENT DATE: 20160420
